FAERS Safety Report 19413311 (Version 2)
Quarter: 2022Q3

REPORT INFORMATION
  Report Type: Spontaneous
  Country: US (occurrence: US)
  Receive Date: 20210614
  Receipt Date: 20220806
  Transmission Date: 20221027
  Serious: Yes (Other)
  Sender: FDA-Public Use
  Company Number: US-MLMSERVICE-20210601-2924401-1

PATIENT
  Age: 60 Year
  Weight: 50 kg

DRUGS (5)
  1. CARBOPLATIN [Suspect]
     Active Substance: CARBOPLATIN
     Indication: Ovarian cancer stage III
     Dosage: CHEMO CYCLE 4,  TREATMENT DAY 107, (AREA UNDER THE CURVE (AUC) 4). ONCE PER CYCLE VIA PORT
  2. PACLITAXEL [Suspect]
     Active Substance: PACLITAXEL
     Indication: Ovarian cancer stage III
     Dosage: 150 MG/M3, CHEMO CYCLE 4,  TREATMENT DAY 107, (ONCE PER CYCLE VIA PORT
  3. BEVACIZUMAB [Suspect]
     Active Substance: BEVACIZUMAB
     Indication: Ovarian cancer stage III
     Dosage: 15 MG/KG, CHEMO CYCLE 4, TREATMENT DAY 107.  IV PIGGYBANK SETUP (IVIP). ONCE PER CYCLE VIA PORT.
  4. PEGFILGRASTIM [Concomitant]
     Active Substance: PEGFILGRASTIM
     Indication: Chemotherapy side effect prophylaxis
  5. IMMUNGLOBULIN [Concomitant]
     Indication: Immunodeficiency congenital
     Dosage: 1 WEEK PRIOR TO CYCLE 4

REACTIONS (1)
  - Urinary incontinence [Unknown]
